FAERS Safety Report 5194513-5 (Version None)
Quarter: 2006Q4

REPORT INFORMATION
  Report Type: 
  Country: None (occurrence: None)
  Receive Date: 20061221
  Receipt Date: 20061212
  Transmission Date: 20070319
  Serious: Yes (Hospitalization)
  Sender: FDA-Public Use
  Company Number: DEWYE808612DEC06

PATIENT
  Age: 31 Year
  Sex: Male

DRUGS (5)
  1. VENLAFAXINE HCL [Suspect]
     Dosage: OVERDOSE  ORAL
     Route: 048
     Dates: start: 20061211, end: 20061211
  2. FLUOXETINE [Suspect]
     Dosage: OVERDOSE  ORAL
     Route: 048
     Dates: start: 20061211, end: 20061211
  3. KATADOLON (FLUPIRTINE MALEATE) [Suspect]
     Dosage: OVERDOSE   ORAL
     Route: 048
     Dates: start: 20061211, end: 20061211
  4. AMITRIPTYLINE HCL [Suspect]
     Dosage: OVERDOSE   ORAL
     Route: 048
     Dates: start: 20061211, end: 20061211
  5. VALORON (TILIDINE HYDROCHLORIDE) [Suspect]
     Dosage: OVERDOSE   ORAL
     Route: 048
     Dates: start: 20061211, end: 20061211

REACTIONS (6)
  - BRADYCARDIA [None]
  - INCORRECT ROUTE OF DRUG ADMINISTRATION [None]
  - INTENTIONAL DRUG MISUSE [None]
  - INTENTIONAL OVERDOSE [None]
  - PHARYNGEAL OEDEMA [None]
  - SOPOR [None]
